FAERS Safety Report 4971633-9 (Version None)
Quarter: 2006Q2

REPORT INFORMATION
  Report Type: 
  Country: None (occurrence: None)
  Receive Date: 20060413
  Receipt Date: 20060403
  Transmission Date: 20061013
  Serious: Yes (Hospitalization)
  Sender: FDA-Public Use
  Company Number: FR-JNJFOC-20060400880

PATIENT
  Age: 32 Year
  Sex: Female
  Weight: 55 kg

DRUGS (5)
  1. EPITOMAX [Suspect]
     Route: 048
     Dates: start: 20050115, end: 20060113
  2. EPITOMAX [Suspect]
     Indication: MIGRAINE PROPHYLAXIS
     Route: 048
     Dates: start: 20050115, end: 20060113
  3. JASMINE [Suspect]
     Route: 048
     Dates: start: 19940615, end: 20060113
  4. JASMINE [Suspect]
     Indication: CONTRACEPTION
     Route: 048
     Dates: start: 19940615, end: 20060113
  5. MYOLASTAN [Concomitant]
     Route: 065

REACTIONS (4)
  - MESENTERIC VEIN THROMBOSIS [None]
  - PORTAL VEIN THROMBOSIS [None]
  - SPLENIC VEIN THROMBOSIS [None]
  - THROMBOSIS [None]
